FAERS Safety Report 24583125 (Version 2)
Quarter: 2025Q3

REPORT INFORMATION
  Report Type: Report from Study
  Country: US (occurrence: US)
  Receive Date: 20241106
  Receipt Date: 20250803
  Transmission Date: 20251021
  Serious: Yes (Other)
  Sender: ALEXION PHARMACEUTICALS
  Company Number: US-AstraZeneca-CH-00735061A

PATIENT
  Sex: Male

DRUGS (13)
  1. BENRALIZUMAB [Suspect]
     Active Substance: BENRALIZUMAB
     Indication: Asthma
     Dosage: 30 MICROGRAM, Q4W
  2. TESTOSTERONE [Concomitant]
     Active Substance: TESTOSTERONE
  3. TRELEGY ELLIPTA [Concomitant]
     Active Substance: FLUTICASONE FUROATE\UMECLIDINIUM BROMIDE\VILANTEROL TRIFENATATE
  4. VENTOLIN [Concomitant]
     Active Substance: ALBUTEROL SULFATE
  5. ALBUTEROL [Concomitant]
     Active Substance: ALBUTEROL
  6. COLISTIMETHATE [Concomitant]
     Active Substance: COLISTIMETHATE SODIUM
  7. MONTELUKAST [Concomitant]
     Active Substance: MONTELUKAST
  8. NEXIUM [Concomitant]
     Active Substance: ESOMEPRAZOLE MAGNESIUM
  9. GABAPENTIN [Concomitant]
     Active Substance: GABAPENTIN
  10. BUPRENORPHINE [Concomitant]
     Active Substance: BUPRENORPHINE
  11. VITAMIN D [Concomitant]
     Active Substance: VITAMIN D NOS
  12. TYLENOL [Concomitant]
     Active Substance: ACETAMINOPHEN
  13. TOBRAMYCIN [Concomitant]
     Active Substance: TOBRAMYCIN

REACTIONS (2)
  - Pneumonia [Unknown]
  - Drug ineffective [Unknown]
